FAERS Safety Report 7927605-5 (Version None)
Quarter: 2011Q4

REPORT INFORMATION
  Report Type: 
  Country: None (occurrence: None)
  Receive Date: 20111118
  Receipt Date: 20111109
  Transmission Date: 20120403
  Serious: Yes (Hospitalization)
  Sender: FDA-Public Use
  Company Number: US-ROCHE-1012303

PATIENT

DRUGS (4)
  1. HERCEPTIN [Suspect]
     Indication: BREAST CANCER
     Dosage: OVER 30 MIN QW ON DAY 1, FOR 52 WEEKS STARTING ON WEEK 13.
     Route: 042
     Dates: start: 20040423
  2. DOXORUBICIN HCL [Suspect]
     Indication: BREAST CANCER
     Dosage: ON DAY 1, Q21D FOR 4 CYCLES.
     Route: 042
     Dates: start: 20040423
  3. CYCLOPHOSPHAMIDE [Suspect]
     Indication: BREAST CANCER
     Dosage: OVER 30 MIN ON DAY 1, Q21D FOR 4 CYCLES.
     Route: 042
     Dates: start: 20040423
  4. PACLITAXEL [Suspect]
     Indication: BREAST CANCER
     Dosage: OVER 1 HR QW ON DAY 1, FOR 12 WEEKS STARTING ON WEEK 13.
     Route: 042
     Dates: start: 20040423

REACTIONS (1)
  - EMBOLISM [None]
